FAERS Safety Report 17926018 (Version 2)
Quarter: 2020Q3

REPORT INFORMATION
  Report Type: Report from Study
  Country: None (occurrence: CO)
  Receive Date: 20200623
  Receipt Date: 20200709
  Transmission Date: 20201103
  Serious: Yes (Disabling, Other)
  Sender: FDA-Public Use
  Company Number: CO-ABBVIE-20K-036-3451628-00

PATIENT
  Age: 46 Year
  Sex: Male
  Weight: 81 kg

DRUGS (1)
  1. HUMIRA [Suspect]
     Active Substance: ADALIMUMAB
     Indication: PSORIASIS
     Route: 058
     Dates: start: 20190320

REACTIONS (7)
  - Gait disturbance [Recovering/Resolving]
  - Fall [Recovering/Resolving]
  - Knee deformity [Recovering/Resolving]
  - Ligament injury [Recovering/Resolving]
  - Pain [Recovering/Resolving]
  - Accident at work [Unknown]
  - Arthralgia [Unknown]

NARRATIVE: CASE EVENT DATE: 20200523
